FAERS Safety Report 6653031-5 (Version None)
Quarter: 2010Q1

REPORT INFORMATION
  Report Type: 
  Country: None (occurrence: None)
  Receive Date: 20100326
  Receipt Date: 20100316
  Transmission Date: 20100710
  Serious: Yes (Other)
  Sender: FDA-Public Use
  Company Number: PHHY2010AR16255

PATIENT
  Age: 68 Year
  Sex: Female

DRUGS (2)
  1. CLOZAPINE [Suspect]
     Indication: PSYCHOTIC DISORDER
     Dosage: 100 MG, QD
     Dates: start: 20100225
  2. BENZODIAZEPINE DERIVATIVES [Concomitant]

REACTIONS (3)
  - DIZZINESS [None]
  - MASKED FACIES [None]
  - PARAESTHESIA [None]
